FAERS Safety Report 26193182 (Version 1)
Quarter: 2025Q4

REPORT INFORMATION
  Report Type: Spontaneous
  Country: US (occurrence: None)
  Receive Date: 20251223
  Receipt Date: 20251223
  Transmission Date: 20260118
  Serious: Yes (Death)
  Sender: FDA-CTU
  Company Number: None

PATIENT
  Age: 70 Year
  Sex: Male
  Weight: 95.13 kg

DRUGS (14)
  1. POMALYST [Suspect]
     Active Substance: POMALIDOMIDE
     Indication: Plasma cell myeloma
     Dosage: FREQUENCY : DAILY;
     Route: 048
  2. ACYCLOVIR [Concomitant]
     Active Substance: ACYCLOVIR
  3. ASPIRIN [Concomitant]
     Active Substance: ASPIRIN
  4. Ativan 1 mg tablet [Concomitant]
  5. CITALOPRAM HYDROCHLORIDE [Concomitant]
     Active Substance: CITALOPRAM HYDROCHLORIDE
  6. Citracal-D3 Slow Release 600 mg-12.5 mcg (500 unit) tablet,extend. rel [Concomitant]
  7. Claritin 10 mg tablet [Concomitant]
  8. DEXAMETHASONE [Concomitant]
     Active Substance: DEXAMETHASONE
  9. fentanyl 12 mcg/hr transdermal patch [Concomitant]
  10. flecainide 100 mg tablet [Concomitant]
  11. LISINOPRIL/HYDROCHLOROTHIAZIDE 20-25 MG TABS [Concomitant]
  12. OXYCODONE 5MG TAB [Concomitant]
  13. turmeric 400 mg capsule [Concomitant]
  14. valacyclovir 500 mg tablet [Concomitant]

REACTIONS (1)
  - Hospice care [None]

NARRATIVE: CASE EVENT DATE: 20251220
